FAERS Safety Report 15698269 (Version 1)
Quarter: 2018Q4

REPORT INFORMATION
  Report Type: Spontaneous
  Country: US (occurrence: US)
  Receive Date: 20181204
  Receipt Date: 20181204
  Transmission Date: 20190205
  Serious: Yes (Disabling)
  Sender: FDA-Public Use
  Company Number: None

PATIENT
  Age: 46 Year
  Sex: Male
  Weight: 104 kg

DRUGS (1)
  1. NIN JIOM PEI PA KOA [Suspect]
     Active Substance: ELM
     Indication: COUGH
     Route: 048
     Dates: start: 20181130, end: 20181202

REACTIONS (1)
  - Tremor [None]

NARRATIVE: CASE EVENT DATE: 20181202
